FAERS Safety Report 6853679-9 (Version None)
Quarter: 2010Q3

REPORT INFORMATION
  Report Type: 
  Country: None (occurrence: None)
  Receive Date: 20100717
  Receipt Date: 20071213
  Transmission Date: 20110219
  Serious: No
  Sender: FDA-Public Use
  Company Number: US-PFIZER INC-2007106008

PATIENT
  Age: 55 Year
  Sex: Female

DRUGS (2)
  1. CHANTIX [Suspect]
     Indication: SMOKING CESSATION THERAPY
     Dates: start: 20071101
  2. MAO INHIBITORS [Interacting]

REACTIONS (2)
  - ADVERSE REACTION [None]
  - DRUG INTERACTION [None]
